FAERS Safety Report 11588249 (Version 1)
Quarter: 2015Q4

REPORT INFORMATION
  Report Type: Spontaneous
  Country: US (occurrence: None)
  Receive Date: 20151001
  Receipt Date: 20151001
  Transmission Date: 20160304
  Serious: Yes (Life-Threatening)
  Sender: FDA-Public Use
  Company Number: None

PATIENT
  Age: 82 Year
  Sex: Male
  Weight: 74.39 kg

DRUGS (1)
  1. WARFARIN [Suspect]
     Active Substance: WARFARIN
     Indication: CARDIAC OPERATION
     Dates: start: 20120712

REACTIONS (10)
  - Abdominal pain upper [None]
  - Abdominal pain [None]
  - Decreased appetite [None]
  - Asthenia [None]
  - Contusion [None]
  - Fatigue [None]
  - Headache [None]
  - Eye pain [None]
  - Transcription medication error [None]
  - Bedridden [None]

NARRATIVE: CASE EVENT DATE: 20150728
